FAERS Safety Report 11475305 (Version 1)
Quarter: 2015Q3

REPORT INFORMATION
  Report Type: Spontaneous
  Country: US (occurrence: None)
  Receive Date: 20150908
  Receipt Date: 20150908
  Transmission Date: 20151125
  Serious: Yes (Hospitalization)
  Sender: FDA-Public Use
  Company Number: None

PATIENT
  Age: 63 Year
  Sex: Male
  Weight: 100 kg

DRUGS (9)
  1. TRAZODONE (DESYREL) [Concomitant]
  2. MULTIPLE VITAMINS-MINERALS (OCUVITE-LUTEIN) [Concomitant]
  3. ASPIRIN. [Concomitant]
     Active Substance: ASPIRIN
  4. LISINOPRIL (ZESTRIL) [Concomitant]
  5. ESOMEPRAZOLE (NEXIUM 24HR) [Concomitant]
  6. WARFARIN 2 MG [Suspect]
     Active Substance: WARFARIN
     Indication: ATRIAL FIBRILLATION
     Route: 048
  7. SIMVASTATIN (ZOCOR) [Concomitant]
  8. METOPROLOL (LOPRESSOR) [Concomitant]
  9. CARBOXYMETHYLCELLULOSE (REFRESH PLUS) [Concomitant]

REACTIONS (8)
  - Hyperhidrosis [None]
  - Heart rate increased [None]
  - Oesophagitis [None]
  - Atrial fibrillation [None]
  - International normalised ratio increased [None]
  - Gastrointestinal haemorrhage [None]
  - Diverticulum [None]
  - Gastric ulcer [None]

NARRATIVE: CASE EVENT DATE: 20150816
